FAERS Safety Report 15362644 (Version 4)
Quarter: 2018Q4

REPORT INFORMATION
  Report Type: Spontaneous
  Country: AU (occurrence: AU)
  Receive Date: 20180907
  Receipt Date: 20181126
  Transmission Date: 20190204
  Serious: Yes (Other)
  Sender: FDA-Public Use
  Company Number: PHHY2018AU089496

PATIENT

DRUGS (3)
  1. MYCOPHENOLATE MOFETIL. [Suspect]
     Active Substance: MYCOPHENOLATE MOFETIL
     Indication: PRODUCT USED FOR UNKNOWN INDICATION
     Dosage: UNK
     Route: 065
     Dates: start: 201511, end: 201807
  2. AZATHIOPRIN [Suspect]
     Active Substance: AZATHIOPRINE
     Indication: ANAEMIA
     Dosage: UNK
     Route: 065
     Dates: start: 20140703, end: 201504
  3. CICLOSPORIN [Suspect]
     Active Substance: CYCLOSPORINE
     Indication: PRODUCT USED FOR UNKNOWN INDICATION
     Dosage: UNK
     Route: 065
     Dates: start: 201211, end: 201406

REACTIONS (3)
  - Dermatitis atopic [Unknown]
  - Drug ineffective [Unknown]
  - Alopecia areata [Unknown]
